FAERS Safety Report 16908814 (Version 2)
Quarter: 2020Q1

REPORT INFORMATION
  Report Type: Spontaneous
  Country: US (occurrence: US)
  Receive Date: 20191011
  Receipt Date: 20200106
  Transmission Date: 20200409
  Serious: No
  Sender: FDA-Public Use
  Company Number: US-PFIZER INC-2019434240

PATIENT
  Age: 69 Year
  Sex: Male
  Weight: 88 kg

DRUGS (1)
  1. LYRICA [Suspect]
     Active Substance: PREGABALIN
     Indication: NEUROPATHY PERIPHERAL
     Dosage: 20 MG, 3X/DAY
     Dates: start: 2017

REACTIONS (4)
  - Off label use [Unknown]
  - Male orgasmic disorder [Recovered/Resolved]
  - Product use in unapproved indication [Unknown]
  - Anorgasmia [Unknown]

NARRATIVE: CASE EVENT DATE: 2017
